FAERS Safety Report 9840829 (Version 1)
Quarter: 2013Q4

REPORT INFORMATION
  Report Type: Spontaneous
  Country: US (occurrence: None)
  Receive Date: 20131213
  Receipt Date: 20131213
  Transmission Date: 20140711
  Serious: Yes (Other)
  Sender: FDA-Public Use
  Company Number: 2012MA012579

PATIENT
  Sex: Female
  Weight: 51.7 kg

DRUGS (27)
  1. METOCLOPRAMIDE [Suspect]
     Indication: IMPAIRED GASTRIC EMPTYING
     Route: 048
     Dates: start: 20080520, end: 20080620
  2. METOCLOPRAMIDE [Suspect]
     Indication: NAUSEA
     Route: 048
     Dates: start: 20080520, end: 20080620
  3. METOCLOPRAMIDE [Suspect]
     Indication: VOMITING
     Route: 048
     Dates: start: 20080520, end: 20080620
  4. ALDACTONE [Concomitant]
  5. CLONAZEPAM [Concomitant]
  6. DICLOXACILLIN [Concomitant]
  7. FENTANYL [Concomitant]
  8. FOLIC ACID [Concomitant]
  9. HYDROCODONE W/ACETAMINOPHEN [Concomitant]
  10. HYDROXYZINE [Concomitant]
  11. KEPPRA [Concomitant]
  12. KLOR-CON [Concomitant]
  13. LEVAQUIN [Concomitant]
  14. LEVOCARNITINE [Concomitant]
  15. LIDODERM [Concomitant]
  16. PANCRELIPASE [Concomitant]
  17. METHADONE [Concomitant]
  18. NEURONTIN [Concomitant]
  19. NEXIUM [Concomitant]
  20. NYSTATIN [Concomitant]
  21. OMEPRAZOLE [Concomitant]
  22. PREDNISONE [Concomitant]
  23. PROPANOLOL [Concomitant]
  24. PROTONIX [Concomitant]
  25. TAMIFLU [Concomitant]
  26. VITAMIN D [Concomitant]
  27. ZOFRAN [Concomitant]

REACTIONS (1)
  - Tardive dyskinesia [None]
